FAERS Safety Report 25031885 (Version 1)
Quarter: 2025Q1

REPORT INFORMATION
  Report Type: Spontaneous
  Country: JP (occurrence: JP)
  Receive Date: 20250303
  Receipt Date: 20250303
  Transmission Date: 20250409
  Serious: Yes (Other)
  Sender: MYLAN
  Company Number: JP-MYLANLABS-2025M1016924

PATIENT
  Age: 22 Year
  Sex: Female
  Weight: 46.5 kg

DRUGS (7)
  1. CYCLOSPORINE [Interacting]
     Active Substance: CYCLOSPORINE
     Indication: Haemophagocytic lymphohistiocytosis
  2. VENETOCLAX [Interacting]
     Active Substance: VENETOCLAX
     Indication: Acute myeloid leukaemia
     Dosage: ON DAY 1
  3. VENETOCLAX [Interacting]
     Active Substance: VENETOCLAX
     Dosage: ON DAY 2 AND DAY 3
  4. VENETOCLAX [Interacting]
     Active Substance: VENETOCLAX
     Dosage: DAYS 4?7
  5. VENETOCLAX [Interacting]
     Active Substance: VENETOCLAX
     Dosage: 300 MILLIGRAM, QD
  6. DANAZOL [Interacting]
     Active Substance: DANAZOL
     Indication: Myelodysplastic syndrome with single lineage dysplasia
     Dosage: 400 MILLIGRAM, QD
  7. AZACITIDINE [Suspect]
     Active Substance: AZACITIDINE
     Indication: Acute myeloid leukaemia
     Dosage: 100 MILLIGRAM, QD

REACTIONS (6)
  - Drug ineffective [Unknown]
  - Drug interaction [Unknown]
  - Aspartate aminotransferase increased [Unknown]
  - Fibrin D dimer increased [Unknown]
  - Drug level increased [Unknown]
  - Off label use [Unknown]
